FAERS Safety Report 4735317-4 (Version None)
Quarter: 2005Q3

REPORT INFORMATION
  Report Type: 
  Country: None (occurrence: None)
  Receive Date: 20050805
  Receipt Date: 20050728
  Transmission Date: 20060218
  Serious: Yes (Hospitalization)
  Sender: FDA-Public Use
  Company Number: ES-ABBOTT-05P-144-0307038-00

PATIENT
  Age: 73 Year
  Sex: Female
  Weight: 54 kg

DRUGS (11)
  1. ZEMPLAR [Suspect]
     Indication: HYPERPARATHYROIDISM
     Route: 042
     Dates: start: 20050719
  2. ZEMPLAR [Suspect]
     Indication: RENAL FAILURE CHRONIC
  3. ACENOCOUMAROL [Suspect]
     Indication: CARDIOMYOPATHY
     Dosage: U, AS NEEDED
     Route: 048
     Dates: start: 20040305, end: 20050722
  4. ACENOCOUMAROL [Suspect]
     Indication: ATRIAL FIBRILLATION
     Route: 048
     Dates: start: 20050726
  5. ACENOCOUMAROL [Suspect]
     Indication: CARDIAC VALVE DISEASE
  6. IBUPROFEN [Suspect]
     Indication: ARTHROPATHY
     Route: 048
     Dates: end: 20050722
  7. HEPARIN-FRACTION, SODIUM SALT [Concomitant]
     Indication: DIALYSIS
     Dosage: 20 MG IN EACH DIALYSIS SESSION
     Route: 058
     Dates: start: 20030901
  8. SACCHARATED IRON OXIDE [Concomitant]
     Indication: DRUG USE FOR UNKNOWN INDICATION
     Route: 065
     Dates: start: 20041206
  9. DARBEPOETIN ALFA [Concomitant]
     Indication: DRUG USE FOR UNKNOWN INDICATION
     Route: 065
     Dates: start: 20050405
  10. LORAZEPAM [Concomitant]
     Indication: DRUG USE FOR UNKNOWN INDICATION
     Route: 048
     Dates: start: 20050503
  11. OMEPRAZOLE [Concomitant]
     Indication: DRUG USE FOR UNKNOWN INDICATION
     Route: 048
     Dates: start: 20050503

REACTIONS (1)
  - ANAEMIA [None]
